FAERS Safety Report 20009197 (Version 1)
Quarter: 2021Q4

REPORT INFORMATION
  Report Type: Spontaneous
  Country: US (occurrence: US)
  Receive Date: 20211028
  Receipt Date: 20211028
  Transmission Date: 20220303
  Serious: No
  Sender: FDA-Public Use
  Company Number: 2021A767164

PATIENT
  Sex: Female

DRUGS (1)
  1. SYMBICORT [Suspect]
     Active Substance: BUDESONIDE\FORMOTEROL FUMARATE DIHYDRATE
     Dosage: UNKNOWN UNKNOWN
     Route: 055
     Dates: start: 202110

REACTIONS (6)
  - Hypoaesthesia [Unknown]
  - Productive cough [Unknown]
  - Paraesthesia [Unknown]
  - Chills [Unknown]
  - Blood pressure increased [Unknown]
  - Headache [Unknown]
